FAERS Safety Report 13955791 (Version 3)
Quarter: 2018Q2

REPORT INFORMATION
  Report Type: Spontaneous
  Country: JP (occurrence: JP)
  Receive Date: 20170911
  Receipt Date: 20180521
  Transmission Date: 20180711
  Serious: Yes (Death, Hospitalization, Other)
  Sender: FDA-Public Use
  Company Number: JP-SHIRE-JP201721240

PATIENT

DRUGS (8)
  1. FOSRENOL [Suspect]
     Active Substance: LANTHANUM CARBONATE
     Indication: CHRONIC KIDNEY DISEASE
     Dosage: 750 MG, 1X/DAY:QD
     Route: 048
     Dates: end: 20170508
  2. MIYA-BM [Concomitant]
     Active Substance: CLOSTRIDIUM BUTYRICUM SPORES STRAIN M-55
     Indication: PRODUCT USED FOR UNKNOWN INDICATION
  3. PLAVIX [Concomitant]
     Active Substance: CLOPIDOGREL BISULFATE
     Indication: CEREBRAL INFARCTION
  4. CALCIUM CARBONATE. [Concomitant]
     Active Substance: CALCIUM CARBONATE
     Indication: PRODUCT USED FOR UNKNOWN INDICATION
  5. LAC-B [Concomitant]
     Active Substance: BIFIDOBACTERIUM SPP.
     Indication: CEREBRAL INFARCTION
  6. VILDAGLIPTIN [Concomitant]
     Active Substance: VILDAGLIPTIN
     Indication: PRODUCT USED FOR UNKNOWN INDICATION
  7. OLMETEC [Concomitant]
     Active Substance: OLMESARTAN MEDOXOMIL
     Indication: PRODUCT USED FOR UNKNOWN INDICATION
  8. FOSRENOL [Suspect]
     Active Substance: LANTHANUM CARBONATE
     Indication: HYPERPHOSPHATAEMIA

REACTIONS (5)
  - General physical health deterioration [Unknown]
  - Sepsis [Fatal]
  - Constipation [Recovered/Resolved]
  - Rectal ulcer [Recovering/Resolving]
  - Medication residue present [Unknown]

NARRATIVE: CASE EVENT DATE: 20170508
